FAERS Safety Report 13996097 (Version 1)
Quarter: 2017Q3

REPORT INFORMATION
  Report Type: Spontaneous
  Country: US (occurrence: US)
  Receive Date: 20170921
  Receipt Date: 20170921
  Transmission Date: 20171128
  Serious: No
  Sender: FDA-Public Use
  Company Number: US-AMARIN PHARMA, INC.-2017AMR000057

PATIENT
  Age: 68 Year
  Sex: Male
  Weight: 101.24 kg

DRUGS (8)
  1. MULTIVITAMIN [Concomitant]
     Active Substance: VITAMINS
     Indication: PRODUCT USED FOR UNKNOWN INDICATION
     Route: 048
  2. VASCEPA [Suspect]
     Active Substance: ICOSAPENT ETHYL
     Indication: BLOOD TRIGLYCERIDES INCREASED
     Route: 048
     Dates: start: 20170208
  3. VITAMIN D [Concomitant]
     Active Substance: CHOLECALCIFEROL
     Indication: PRODUCT USED FOR UNKNOWN INDICATION
     Route: 048
  4. LOW DOSE ASPIRIN [Concomitant]
     Active Substance: ASPIRIN
     Indication: PRODUCT USED FOR UNKNOWN INDICATION
     Route: 048
  5. VASCEPA [Suspect]
     Active Substance: ICOSAPENT ETHYL
     Route: 048
     Dates: start: 20161129
  6. TESTOSTERONE. [Concomitant]
     Active Substance: TESTOSTERONE
     Indication: BLOOD TESTOSTERONE DECREASED
  7. SYNTHROID [Concomitant]
     Active Substance: LEVOTHYROXINE SODIUM
     Indication: HYPOTHYROIDISM
     Route: 048
  8. TAMSULOSIN [Concomitant]
     Active Substance: TAMSULOSIN
     Indication: PROSTATOMEGALY
     Route: 065

REACTIONS (4)
  - Joint range of motion decreased [Not Recovered/Not Resolved]
  - Joint swelling [Not Recovered/Not Resolved]
  - Arthralgia [Not Recovered/Not Resolved]
  - Drug dose omission [Recovered/Resolved]

NARRATIVE: CASE EVENT DATE: 201702
